FAERS Safety Report 8945342 (Version 1)
Quarter: 2012Q4

REPORT INFORMATION
  Report Type: Report from Study
  Country: IE (occurrence: IE)
  Receive Date: 20121205
  Receipt Date: 20121205
  Transmission Date: 20130627
  Serious: Yes (Death, Hospitalization)
  Sender: FDA-Public Use
  Company Number: IE-MERCK-1104USA01556

PATIENT
  Age: 66 Year
  Sex: Male

DRUGS (9)
  1. DEXAMETHASONE [Suspect]
     Indication: PROSTATE CANCER
     Dosage: 8 mg, bid
     Route: 048
     Dates: start: 20110116, end: 20110118
  2. MK-9350 [Suspect]
     Indication: PROSTATE CANCER
     Dosage: 10 mg, qd
     Route: 048
     Dates: start: 20110117, end: 20110809
  3. TAXOTERE [Suspect]
     Indication: PROSTATE CANCER
     Dosage: 75 mg/m2, Cyclical
     Route: 042
     Dates: start: 20110117, end: 20110613
  4. DASATINIB [Suspect]
     Indication: PROSTATE CANCER
     Dosage: 100 mg, qd
     Route: 048
     Dates: start: 20110117, end: 20110630
  5. LIPITOR [Concomitant]
  6. ATACAND [Concomitant]
  7. ISTIN [Concomitant]
  8. MIDAZOLAM [Concomitant]
  9. LIDOCAINE HYDROCHLORIDE [Concomitant]

REACTIONS (6)
  - Malignant neoplasm progression [Fatal]
  - Renal failure acute [Fatal]
  - Chest pain [Recovered/Resolved with Sequelae]
  - Abdominal pain upper [Recovered/Resolved with Sequelae]
  - Gastritis [Recovered/Resolved with Sequelae]
  - Gastric ulcer [Recovered/Resolved with Sequelae]
